FAERS Safety Report 17920801 (Version 1)
Quarter: 2020Q2

REPORT INFORMATION
  Report Type: Spontaneous
  Country: US (occurrence: US)
  Receive Date: 20200621
  Receipt Date: 20200621
  Transmission Date: 20200714
  Serious: No
  Sender: FDA-Public Use
  Company Number: US-BRISTOL-MYERS SQUIBB COMPANY-BMS-2020-048718

PATIENT
  Sex: Male
  Weight: 108.86 kg

DRUGS (1)
  1. COUMADIN [Suspect]
     Active Substance: WARFARIN SODIUM
     Indication: HEART VALVE REPLACEMENT
     Dosage: PATIENT STATES THAT HE RECEIVES THE 5MG TABLETS AND TAKES ONE WHOLE TABLET AND BREAKS THE OTHER IN H
     Route: 048

REACTIONS (2)
  - Wrong technique in product usage process [Unknown]
  - International normalised ratio abnormal [Unknown]
